FAERS Safety Report 14568478 (Version 1)
Quarter: 2018Q1

REPORT INFORMATION
  Report Type: Spontaneous
  Country: US (occurrence: US)
  Receive Date: 20180216
  Receipt Date: 20180216
  Transmission Date: 20180509
  Serious: Yes (Hospitalization)
  Sender: FDA-Public Use
  Company Number: None

PATIENT
  Age: 53 Year
  Sex: Female

DRUGS (8)
  1. MECLIZINE 25MG [Concomitant]
  2. HUMIRA [Suspect]
     Active Substance: ADALIMUMAB
     Indication: RHEUMATOID ARTHRITIS
     Dosage: ?          OTHER FREQUENCY:EVERY OTHER WEEK;?
     Route: 058
     Dates: start: 20170906
  3. CELECOXIB 200MG [Concomitant]
     Active Substance: CELECOXIB
  4. CYANACOBALAMINE 1000MCG INJ [Concomitant]
  5. HYDROXYCHLOROQUINE 200MG [Concomitant]
     Active Substance: HYDROXYCHLOROQUINE
  6. PREMARIN [Concomitant]
     Active Substance: ESTROGENS, CONJUGATED
  7. FLUOXETINE [Concomitant]
     Active Substance: FLUOXETINE HYDROCHLORIDE
  8. BUSPIRONE 10MG [Concomitant]

REACTIONS (4)
  - Pruritus [None]
  - Lip swelling [None]
  - Burning sensation [None]
  - Peripheral swelling [None]

NARRATIVE: CASE EVENT DATE: 20180210
